FAERS Safety Report 16376318 (Version 1)
Quarter: 2019Q2

REPORT INFORMATION
  Report Type: Spontaneous
  Country: ES (occurrence: ES)
  Receive Date: 20190531
  Receipt Date: 20190531
  Transmission Date: 20190711
  Serious: Yes (Hospitalization)
  Sender: FDA-Public Use
  Company Number: ES-TEVA-2019-ES-1056193

PATIENT
  Age: 74 Year
  Sex: Male

DRUGS (2)
  1. ENALAPRIL (2142A) [Suspect]
     Active Substance: ENALAPRIL
     Indication: HYPERTENSION
     Dosage: 10MG DIA
     Route: 048
     Dates: start: 20180320, end: 20180408
  2. ESPIRONOLACTONA 25 MG COMPRIMIDOS [Interacting]
     Active Substance: SPIRONOLACTONE
     Indication: ALCOHOLIC LIVER DISEASE
     Dosage: 1-0-0
     Route: 048
     Dates: start: 20180320, end: 20180408

REACTIONS (3)
  - Hyperkalaemia [Recovered/Resolved]
  - Drug interaction [Unknown]
  - Acute kidney injury [Recovered/Resolved]

NARRATIVE: CASE EVENT DATE: 20180408
